FAERS Safety Report 6999431-5 (Version None)
Quarter: 2010Q3

REPORT INFORMATION
  Report Type: 
  Country: None (occurrence: None)
  Receive Date: 20100920
  Receipt Date: 20100907
  Transmission Date: 20110219
  Serious: Yes (Hospitalization)
  Sender: FDA-Public Use
  Company Number: PHHY2010JP55272

PATIENT
  Sex: Female

DRUGS (2)
  1. ZOMETA [Suspect]
     Indication: METASTASES TO BONE
     Dosage: UNK
     Route: 041
     Dates: start: 20070401, end: 20100501
  2. AREDIA [Suspect]
     Indication: METASTASES TO BONE
     Dosage: UNK
     Route: 041
     Dates: start: 20020101, end: 20060501

REACTIONS (8)
  - ABSCESS MANAGEMENT [None]
  - BONE DISORDER [None]
  - ERYTHEMA [None]
  - GINGIVAL SWELLING [None]
  - OSTEOMYELITIS [None]
  - PURULENT DISCHARGE [None]
  - SWELLING FACE [None]
  - TOOTH EXTRACTION [None]
